FAERS Safety Report 10008661 (Version 2)
Quarter: 2014Q1

REPORT INFORMATION
  Report Type: Other
  Country: FR (occurrence: FR)
  Receive Date: 20140313
  Receipt Date: 20140313
  Transmission Date: 20141002
  Serious: Yes (Hospitalization)
  Sender: FDA-Public Use
  Company Number: FR-TAKEDA-2014TUS001587

PATIENT
  Sex: 0

DRUGS (5)
  1. ADENURIC [Suspect]
     Indication: GOUT
     Dosage: UNK
     Route: 048
     Dates: start: 201311, end: 20131116
  2. RUPATADINE [Suspect]
     Indication: PRODUCT USED FOR UNKNOWN INDICATION
     Dosage: UNK
     Route: 048
     Dates: start: 201311, end: 20131116
  3. FUROSEMIDE [Suspect]
     Indication: PRODUCT USED FOR UNKNOWN INDICATION
     Dosage: UNK
     Route: 048
     Dates: start: 201311, end: 20131116
  4. LORAZEPAM [Suspect]
     Indication: PRODUCT USED FOR UNKNOWN INDICATION
     Dosage: UNK
     Route: 048
     Dates: start: 201311, end: 20131116
  5. DAFALGAN CODEINE [Suspect]
     Indication: PRODUCT USED FOR UNKNOWN INDICATION
     Dosage: UNK
     Route: 048
     Dates: start: 201311, end: 20131116

REACTIONS (2)
  - Acute generalised exanthematous pustulosis [Unknown]
  - Hyponatraemia [Unknown]
